FAERS Safety Report 7597224-1 (Version None)
Quarter: 2011Q3

REPORT INFORMATION
  Report Type: 
  Country: None (occurrence: None)
  Receive Date: 20110708
  Receipt Date: 20101014
  Transmission Date: 20111222
  Serious: No
  Sender: FDA-Public Use
  Company Number: US-GLAXOSMITHKLINE-A0886716A

PATIENT
  Age: 60 Year
  Sex: Female

DRUGS (6)
  1. SYNTHROID [Concomitant]
  2. AMOXICILLIN [Concomitant]
  3. FLOVENT [Suspect]
     Indication: ASTHMA
     Dosage: 44MCG UNKNOWN
     Route: 055
     Dates: start: 20110414, end: 20110417
  4. FLOVENT [Suspect]
     Indication: MULTIPLE ALLERGIES
     Dosage: 2SPR TWICE PER DAY
     Route: 055
     Dates: start: 20100601, end: 20101012
  5. ATIVAN [Concomitant]
  6. POTASSIUM [Concomitant]

REACTIONS (7)
  - ILL-DEFINED DISORDER [None]
  - PSYCHOMOTOR HYPERACTIVITY [None]
  - HEADACHE [None]
  - TREMOR [None]
  - SINUSITIS [None]
  - NERVOUSNESS [None]
  - AGITATION [None]
